FAERS Safety Report 24646287 (Version 1)
Quarter: 2024Q4

REPORT INFORMATION
  Report Type: Spontaneous
  Country: US (occurrence: US)
  Receive Date: 20241121
  Receipt Date: 20241121
  Transmission Date: 20250114
  Serious: No
  Sender: GLAXOSMITHKLINE
  Company Number: US-GSK-US2024AMR138934

PATIENT
  Sex: Female

DRUGS (3)
  1. FLUTICASONE PROPIONATE\SALMETEROL XINAFOATE [Suspect]
     Active Substance: FLUTICASONE PROPIONATE\SALMETEROL XINAFOATE
     Indication: Bronchial hyperreactivity
     Dosage: UNK,100/50 MCG, 60
  2. ACYCLOVIR [Concomitant]
     Active Substance: ACYCLOVIR
     Indication: Pain
     Dosage: UNK,CREAM
  3. LYRICA [Concomitant]
     Active Substance: PREGABALIN
     Indication: Pain
     Dosage: UNK

REACTIONS (5)
  - Dysphonia [Unknown]
  - Lip swelling [Unknown]
  - Oral discomfort [Unknown]
  - Off label use [Unknown]
  - Product prescribing issue [Unknown]
